FAERS Safety Report 5826865-4 (Version None)
Quarter: 2008Q3

REPORT INFORMATION
  Report Type: 
  Country: None (occurrence: None)
  Receive Date: 20080730
  Receipt Date: 20080723
  Transmission Date: 20090109
  Serious: Yes (Other)
  Sender: FDA-Public Use
  Company Number: US-AVENTIS-200814602US

PATIENT
  Age: 58 Year
  Sex: Male

DRUGS (7)
  1. LANTUS [Suspect]
     Route: 058
     Dates: start: 20080101
  2. ATACAND [Concomitant]
     Dosage: DOSE: UNK
  3. ANALGESICS [Concomitant]
     Dosage: DOSE: UNK
  4. PLETAL [Concomitant]
     Dosage: DOSE: UNK
  5. PLAVIX [Concomitant]
     Dosage: DOSE: UNK
  6. PRAVACHOL [Concomitant]
     Dosage: DOSE: UNK
  7. NOVOLIN 70/30 [Concomitant]
     Dosage: DOSE: UNK

REACTIONS (4)
  - GAIT DISTURBANCE [None]
  - GLYCOSYLATED HAEMOGLOBIN INCREASED [None]
  - HYPERTENSIVE CRISIS [None]
  - OFF LABEL USE [None]
